FAERS Safety Report 25445583 (Version 3)
Quarter: 2025Q3

REPORT INFORMATION
  Report Type: Spontaneous
  Country: JP (occurrence: JP)
  Receive Date: 20250617
  Receipt Date: 20250722
  Transmission Date: 20251021
  Serious: Yes (Other)
  Sender: PFIZER
  Company Number: JP-BRISTOL-MYERS SQUIBB COMPANY-2025-081356

PATIENT
  Age: 49 Year
  Sex: Male

DRUGS (4)
  1. ELIQUIS [Suspect]
     Active Substance: APIXABAN
     Route: 048
  2. OXALIPLATIN [Suspect]
     Active Substance: OXALIPLATIN
  3. OPDIVO [Suspect]
     Active Substance: NIVOLUMAB
     Indication: Oesophageal adenocarcinoma
  4. GIMERACIL\OTERACIL\TEGAFUR [Suspect]
     Active Substance: GIMERACIL\OTERACIL POTASSIUM\TEGAFUR
     Indication: Oesophageal adenocarcinoma

REACTIONS (2)
  - Oesophageal adenocarcinoma [Recovering/Resolving]
  - Immune-mediated enterocolitis [Unknown]
